FAERS Safety Report 19092284 (Version 1)
Quarter: 2021Q2

REPORT INFORMATION
  Report Type: Spontaneous
  Country: PL (occurrence: PL)
  Receive Date: 20210405
  Receipt Date: 20210405
  Transmission Date: 20210717
  Serious: Yes (Other)
  Sender: FDA-Public Use
  Company Number: PL-TEVA-2021-PL-1897977

PATIENT
  Age: 68 Year
  Sex: Male

DRUGS (10)
  1. ATORVASTATIN [Suspect]
     Active Substance: ATORVASTATIN
     Indication: PRODUCT USED FOR UNKNOWN INDICATION
     Dosage: 40 MILLIGRAM DAILY;
     Route: 048
  2. FLUCONAZOLE. [Interacting]
     Active Substance: FLUCONAZOLE
     Indication: PENILE INFECTION
     Dosage: 200 MILLIGRAM DAILY;
     Route: 048
  3. FUROSEMIDE. [Interacting]
     Active Substance: FUROSEMIDE
     Indication: PRODUCT USED FOR UNKNOWN INDICATION
     Route: 048
  4. CIPROFLOXACIN. [Interacting]
     Active Substance: CIPROFLOXACIN
     Indication: PENILE INFECTION
     Dosage: 1000 MILLIGRAM DAILY;
     Route: 048
  5. QUETIAPINE. [Interacting]
     Active Substance: QUETIAPINE
     Indication: INSOMNIA
     Dosage: 50 MILLIGRAM DAILY; AT BEDTIME
     Route: 065
  6. RIVAROXABAN [Interacting]
     Active Substance: RIVAROXABAN
     Indication: PRODUCT USED FOR UNKNOWN INDICATION
     Route: 048
  7. METOPROLOL. [Interacting]
     Active Substance: METOPROLOL
     Indication: PRODUCT USED FOR UNKNOWN INDICATION
     Route: 048
  8. DIAZEPAM. [Interacting]
     Active Substance: DIAZEPAM
     Indication: INSOMNIA
     Dosage: 10 MILLIGRAM DAILY; HALF AN HOUR BEFORE BEDTIME
     Route: 065
  9. QUETIAPINE. [Interacting]
     Active Substance: QUETIAPINE
     Dosage: 25 MILLIGRAM DAILY; AT BEDTIME
     Route: 065
  10. CETIRIZINE [Interacting]
     Active Substance: CETIRIZINE HYDROCHLORIDE
     Indication: PRURITUS GENITAL
     Dosage: 10 MILLIGRAM DAILY;
     Route: 065

REACTIONS (6)
  - Drug interaction [Unknown]
  - Penile haemorrhage [Recovered/Resolved]
  - Therapy non-responder [Unknown]
  - Fall [Recovered/Resolved]
  - Disease progression [Recovered/Resolved]
  - Pruritus genital [Recovered/Resolved]
